FAERS Safety Report 8500230-3 (Version None)
Quarter: 2012Q3

REPORT INFORMATION
  Report Type: 
  Country: None (occurrence: None)
  Receive Date: 20120710
  Receipt Date: 20120703
  Transmission Date: 20120928
  Serious: Yes (Other)
  Sender: FDA-Public Use
  Company Number: PHHY2012FR057607

PATIENT
  Sex: Female

DRUGS (7)
  1. REVLIMID [Suspect]
     Indication: MULTIPLE MYELOMA
     Dosage: 14 DF, QMO
     Route: 048
  2. NEXIUM [Suspect]
     Indication: MULTIPLE MYELOMA
     Route: 048
  3. AREDIA [Suspect]
     Indication: MULTIPLE MYELOMA
  4. AMOXICILLIN [Suspect]
     Indication: MULTIPLE MYELOMA
     Route: 048
  5. OXAZEPAM [Suspect]
     Indication: MULTIPLE MYELOMA
     Route: 048
     Dates: start: 20120101
  6. BACTRIM DS [Suspect]
     Indication: MULTIPLE MYELOMA
     Route: 048
     Dates: start: 20120201
  7. VALACYCLOVIR HYDROCHLORIDE [Suspect]
     Indication: MULTIPLE MYELOMA
     Route: 048
     Dates: start: 20120101, end: 20120618

REACTIONS (4)
  - SKIN LESION [None]
  - PURPURA [None]
  - RASH MACULO-PAPULAR [None]
  - RASH ERYTHEMATOUS [None]
